FAERS Safety Report 9066822 (Version 1)
Quarter: 2013Q1

REPORT INFORMATION
  Report Type: Report from Study
  Country: JP (occurrence: JP)
  Receive Date: 20130214
  Receipt Date: 20130214
  Transmission Date: 20140127
  Serious: Yes (Other)
  Sender: FDA-Public Use
  Company Number: JP-GLAXOSMITHKLINE-B0866341A

PATIENT
  Age: 78 None
  Sex: Male

DRUGS (12)
  1. AVOLVE [Suspect]
     Indication: BENIGN PROSTATIC HYPERPLASIA
     Dosage: .5MG PER DAY
     Route: 048
     Dates: start: 20110610
  2. URIEF [Concomitant]
     Indication: BENIGN PROSTATIC HYPERPLASIA
     Route: 048
     Dates: end: 20110805
  3. VESICARE [Concomitant]
     Indication: BENIGN PROSTATIC HYPERPLASIA
     Route: 048
     Dates: end: 20110625
  4. EVIPROSTAT [Concomitant]
     Indication: BENIGN PROSTATIC HYPERPLASIA
     Route: 048
     Dates: start: 20110708, end: 20110722
  5. EVIPROSTAT [Concomitant]
     Indication: BENIGN PROSTATIC HYPERPLASIA
     Route: 048
     Dates: start: 20120123
  6. BLADDERON [Concomitant]
     Indication: BENIGN PROSTATIC HYPERPLASIA
     Route: 048
     Dates: start: 20110722, end: 20110805
  7. STAYBLA [Concomitant]
     Indication: BENIGN PROSTATIC HYPERPLASIA
     Route: 048
     Dates: start: 20110806, end: 20110908
  8. FLIVAS [Concomitant]
     Indication: BENIGN PROSTATIC HYPERPLASIA
     Route: 048
     Dates: start: 20110806, end: 20110908
  9. HARNAL [Concomitant]
     Indication: BENIGN PROSTATIC HYPERPLASIA
     Route: 048
     Dates: start: 20110909
  10. DETRUSITOL [Concomitant]
     Indication: BENIGN PROSTATIC HYPERPLASIA
     Route: 048
     Dates: start: 20110909, end: 20111030
  11. BETANIS [Concomitant]
     Indication: BENIGN PROSTATIC HYPERPLASIA
     Route: 048
     Dates: start: 20111031, end: 20120415
  12. POLLAKISU [Concomitant]
     Indication: BENIGN PROSTATIC HYPERPLASIA
     Route: 048
     Dates: start: 20120416

REACTIONS (10)
  - Prostatitis [Recovering/Resolving]
  - Enterocolitis [Recovering/Resolving]
  - Prostatitis [Recovering/Resolving]
  - Enterocolitis [Recovering/Resolving]
  - Prostatitis [Recovering/Resolving]
  - Prostatitis [Recovering/Resolving]
  - Prostatitis [Recovering/Resolving]
  - Prostatitis [Recovering/Resolving]
  - Enterocolitis [Recovering/Resolving]
  - Prostatitis [Recovering/Resolving]
